FAERS Safety Report 5553666-7 (Version None)
Quarter: 2007Q4

REPORT INFORMATION
  Report Type: 
  Country: None (occurrence: None)
  Receive Date: 20071130
  Receipt Date: 20070815
  Transmission Date: 20080405
  Serious: Yes (Hospitalization)
  Sender: FDA-Public Use
  Company Number: US200708003788

PATIENT
  Age: 78 Year
  Sex: Female

DRUGS (4)
  1. BYETTA [Suspect]
     Dosage: 5 UG, 2/D, SUBCUTANEOUS
     Route: 058
     Dates: start: 20070319, end: 20070710
  2. .. [Concomitant]
  3. AVANDIA [Concomitant]
  4. AMARYL [Concomitant]

REACTIONS (2)
  - NAUSEA [None]
  - VOMITING [None]
